FAERS Safety Report 25771539 (Version 1)
Quarter: 2025Q3

REPORT INFORMATION
  Report Type: Spontaneous
  Country: US (occurrence: US)
  Receive Date: 20250908
  Receipt Date: 20250908
  Transmission Date: 20251020
  Serious: No
  Sender: DOMPE FARMACEUTICI
  Company Number: US-FARMAPROD-202504-1405

PATIENT
  Sex: Female

DRUGS (24)
  1. OXERVATE [Suspect]
     Active Substance: CENEGERMIN-BKBJ
     Indication: Neurotrophic keratopathy
     Route: 047
     Dates: start: 20250425
  2. OXERVATE [Suspect]
     Active Substance: CENEGERMIN-BKBJ
  3. ALEVE [Concomitant]
     Active Substance: NAPROXEN SODIUM
  4. ALLOPURINOL [Concomitant]
     Active Substance: ALLOPURINOL
  5. POTASSIUM [Concomitant]
     Active Substance: POTASSIUM
  6. TACROLIMUS [Concomitant]
     Active Substance: TACROLIMUS
  7. DOCUSATE SODIUM [Concomitant]
     Active Substance: DOCUSATE SODIUM
  8. ZINC [Concomitant]
     Active Substance: ZINC
  9. MAGNESIUM [Concomitant]
     Active Substance: MAGNESIUM
  10. VENLAFAXINE HCL [Concomitant]
     Active Substance: VENLAFAXINE HYDROCHLORIDE
  11. TOLTERODINE TARTRATE [Concomitant]
     Active Substance: TOLTERODINE TARTRATE
  12. OMEPRAZOLE [Concomitant]
     Active Substance: OMEPRAZOLE
  13. MULTIVITAMIN 50 PLUS [Concomitant]
  14. FLUTICASONE PROPIONATE [Concomitant]
     Active Substance: FLUTICASONE PROPIONATE
  15. DOXYCYCLINE HYCLATE [Concomitant]
     Active Substance: DOXYCYCLINE HYCLATE
  16. DESONIDE [Concomitant]
     Active Substance: DESONIDE
  17. RESTASIS [Concomitant]
     Active Substance: CYCLOSPORINE
  18. CLONAZEPAM [Concomitant]
     Active Substance: CLONAZEPAM
  19. CETIRIZINE HCL [Concomitant]
     Active Substance: CETIRIZINE HYDROCHLORIDE
  20. CALCIUM [Concomitant]
     Active Substance: CALCIUM
  21. BLINK TEARS [Concomitant]
     Active Substance: POLYETHYLENE GLYCOL 400
  22. ASPIRIN [Concomitant]
     Active Substance: ASPIRIN
  23. AMLODIPINE BESYLATE [Concomitant]
     Active Substance: AMLODIPINE BESYLATE
  24. ALBUTEROL SULFATE [Concomitant]
     Active Substance: ALBUTEROL SULFATE

REACTIONS (8)
  - Eye irritation [Not Recovered/Not Resolved]
  - Photophobia [Not Recovered/Not Resolved]
  - Lacrimation increased [Not Recovered/Not Resolved]
  - Eye pain [Not Recovered/Not Resolved]
  - Swelling of eyelid [Recovering/Resolving]
  - Treatment noncompliance [Unknown]
  - Dry eye [Recovering/Resolving]
  - Inappropriate schedule of product administration [Unknown]
